FAERS Safety Report 7414397-1 (Version None)
Quarter: 2011Q2

REPORT INFORMATION
  Report Type: 
  Country: None (occurrence: None)
  Receive Date: 20110411
  Receipt Date: 20110411
  Transmission Date: 20111010
  Serious: Yes (Life-Threatening, Other)
  Sender: FDA-Public Use
  Company Number: None

PATIENT
  Age: 44 Year
  Sex: Male
  Weight: 65.318 kg

DRUGS (1)
  1. DOXEPIN [Suspect]
     Indication: DEPRESSION
     Dosage: 100 MG CAPSULE MYL TWICE A DAY
     Dates: start: 20100207, end: 20110308

REACTIONS (3)
  - POISONING [None]
  - ABDOMINAL PAIN UPPER [None]
  - PRODUCT QUALITY ISSUE [None]
